FAERS Safety Report 22044230 (Version 1)
Quarter: 2023Q1

REPORT INFORMATION
  Report Type: Spontaneous
  Country: US (occurrence: None)
  Receive Date: 20230227
  Receipt Date: 20230227
  Transmission Date: 20230418
  Serious: Yes (Disabling)
  Sender: FDA-Public Use
  Company Number: None

PATIENT
  Age: 20 Year
  Sex: Female
  Weight: 63 kg

DRUGS (3)
  1. VYVANSE [Suspect]
     Active Substance: LISDEXAMFETAMINE DIMESYLATE
     Indication: Attention deficit hyperactivity disorder
     Dosage: OTHER QUANTITY : 1 CAPSULE(S);?
     Route: 048
     Dates: start: 20230127, end: 20230224
  2. ZOLOFT [Concomitant]
     Active Substance: SERTRALINE HYDROCHLORIDE
  3. left lilac vein stent [Concomitant]

REACTIONS (7)
  - Drug ineffective [None]
  - Increased appetite [None]
  - Disturbance in attention [None]
  - Impulsive behaviour [None]
  - Therapy cessation [None]
  - Product formulation issue [None]
  - Underdose [None]

NARRATIVE: CASE EVENT DATE: 20230130
